FAERS Safety Report 22164959 (Version 3)
Quarter: 2023Q2

REPORT INFORMATION
  Report Type: Other
  Country: ES (occurrence: ES)
  Receive Date: 20230403
  Receipt Date: 20230608
  Transmission Date: 20230722
  Serious: Yes (Hospitalization)
  Sender: FDA-Public Use
  Company Number: ES-TOLMAR, INC.-23ES039830

PATIENT
  Age: 73 Year
  Sex: Male
  Weight: 107 kg

DRUGS (10)
  1. ELIGARD [Suspect]
     Active Substance: LEUPROLIDE ACETATE
     Indication: Prostate cancer
     Dosage: 22.5 MILLIGRAM, Q 3 MONTH
     Route: 058
     Dates: start: 20160525
  2. ENZALUTAMIDE [Suspect]
     Active Substance: ENZALUTAMIDE
     Indication: Prostate cancer
     Dosage: UNK
     Route: 048
     Dates: start: 20160525
  3. OMEPRAZOLE [Concomitant]
     Active Substance: OMEPRAZOLE
     Indication: Dyspepsia
     Dosage: UNK
     Dates: start: 2014
  4. OMEPRAZOLE [Concomitant]
     Active Substance: OMEPRAZOLE
     Indication: Polyp
     Dosage: UNK
     Dates: start: 20170206, end: 20170207
  5. HIDROSMIN [Concomitant]
     Active Substance: HIDROSMIN
     Indication: Haemorrhoids
     Dosage: UNK
     Dates: start: 20170219, end: 20170226
  6. ENALAPRIL MALEATE AND HYDROCHLOROTHIAZIDE [Concomitant]
     Active Substance: ENALAPRIL MALEATE\HYDROCHLOROTHIAZIDE
     Indication: Hypertension
     Dosage: UNK
     Dates: start: 2009
  7. CEFOXITIN [Concomitant]
     Active Substance: CEFOXITIN SODIUM
     Indication: Polyp
     Dosage: UNK
     Dates: start: 20170206, end: 20170207
  8. MORPHINE [Concomitant]
     Active Substance: MORPHINE
     Indication: Polyp
  9. ONDANSETRON [Concomitant]
     Active Substance: ONDANSETRON
     Indication: Prophylaxis
     Dosage: UNK
     Dates: start: 20170206, end: 20170207
  10. HALOPERIDOL [Concomitant]
     Active Substance: HALOPERIDOL
     Indication: Polyp

REACTIONS (1)
  - Osteoarthritis [Recovered/Resolved]

NARRATIVE: CASE EVENT DATE: 20190606
